FAERS Safety Report 6016811-5 (Version None)
Quarter: 2008Q4

REPORT INFORMATION
  Report Type: 
  Country: None (occurrence: None)
  Receive Date: 20081219
  Receipt Date: 20081209
  Transmission Date: 20090506
  Serious: Yes (Death, Hospitalization, Other)
  Sender: FDA-Public Use
  Company Number: ENTC2007-0136

PATIENT
  Age: 85 Year
  Sex: Female

DRUGS (1)
  1. STALEVO 100 [Suspect]
     Indication: PARKINSON'S DISEASE
     Dosage: 100/25/200MG
     Route: 048

REACTIONS (3)
  - FALL [None]
  - GASTROINTESTINAL ULCER HAEMORRHAGE [None]
  - HIP FRACTURE [None]
